FAERS Safety Report 17146906 (Version 1)
Quarter: 2019Q4

REPORT INFORMATION
  Report Type: Spontaneous
  Country: DK (occurrence: DK)
  Receive Date: 20191212
  Receipt Date: 20191212
  Transmission Date: 20200122
  Serious: Yes (Hospitalization)
  Sender: FDA-Public Use
  Company Number: NVSC2019DK063581

PATIENT
  Age: 95 Year
  Sex: Female

DRUGS (2)
  1. LOSARTAN/HYDROCHLOROTHIAZIDE 100MG/25MG FILM-COATED TABLETS [Suspect]
     Active Substance: HYDROCHLOROTHIAZIDE\LOSARTAN POTASSIUM
     Indication: HYPERTENSION
     Dosage: 100+25MGX1
     Route: 065
  2. DESMOPRESSIN [Suspect]
     Active Substance: DESMOPRESSIN
     Indication: NOCTURIA
     Dosage: 60 UG (X114 DAYS)
     Route: 065

REACTIONS (5)
  - Hyponatraemia [Unknown]
  - Delirium [Unknown]
  - Confusional state [Unknown]
  - Hallucination [Unknown]
  - Pneumonia [Unknown]
